FAERS Safety Report 24059665 (Version 1)
Quarter: 2024Q3

REPORT INFORMATION
  Report Type: Spontaneous
  Country: HU (occurrence: HU)
  Receive Date: 20240708
  Receipt Date: 20240708
  Transmission Date: 20241017
  Serious: Yes (Death)
  Sender: ACCORD
  Company Number: HU-EMA-DD-20240626-7482689-073756

PATIENT
  Age: 46 Year
  Sex: Male

DRUGS (6)
  1. BORTEZOMIB [Suspect]
     Active Substance: BORTEZOMIB
     Indication: POEMS syndrome
  2. CYCLOPHOSPHAMIDE [Suspect]
     Active Substance: CYCLOPHOSPHAMIDE
     Indication: Plasma cell myeloma
  3. DEXAMETHASONE [Suspect]
     Active Substance: DEXAMETHASONE
     Indication: POEMS syndrome
  4. CARFILZOMIB [Suspect]
     Active Substance: CARFILZOMIB
     Indication: Plasma cell myeloma
  5. AZATHIOPRINE SODIUM [Concomitant]
     Active Substance: AZATHIOPRINE SODIUM
     Indication: Product used for unknown indication
  6. DEXAMETHASONE [Suspect]
     Active Substance: DEXAMETHASONE
     Indication: Plasma cell myeloma

REACTIONS (2)
  - Sepsis [Fatal]
  - Asthenia [Fatal]
